FAERS Safety Report 6285399-6 (Version None)
Quarter: 2009Q3

REPORT INFORMATION
  Report Type: 
  Country: None (occurrence: None)
  Receive Date: 20090727
  Receipt Date: 20090721
  Transmission Date: 20100115
  Serious: No
  Sender: FDA-Public Use
  Company Number: US-B.I. PHARMACEUTICALS,INC./RIDGEFIELD-2009-BP-08682BP

PATIENT
  Age: 58 Year
  Sex: Male

DRUGS (6)
  1. CATAPRES-TTS-1 [Suspect]
     Indication: HYPERTENSION
     Dosage: 0.1 MG
     Route: 061
     Dates: start: 20060101
  2. CATAPRES-TTS-1 [Suspect]
     Dosage: 0.3 MG
     Route: 061
  3. METOPROLOL TARTRATE [Concomitant]
     Indication: HYPERTENSION
  4. LIPITOR [Concomitant]
     Indication: BLOOD CHOLESTEROL INCREASED
  5. LEXAPRO [Concomitant]
     Indication: HYPERTENSION
  6. AVALIDE [Concomitant]
     Indication: HYPERTENSION

REACTIONS (3)
  - APPLICATION SITE PRURITUS [None]
  - APPLICATION SITE RASH [None]
  - MYALGIA [None]
